FAERS Safety Report 19694507 (Version 2)
Quarter: 2022Q3

REPORT INFORMATION
  Report Type: Report from Study
  Country: US (occurrence: US)
  Receive Date: 20210812
  Receipt Date: 20220929
  Transmission Date: 20221027
  Serious: Yes (Other)
  Sender: FDA-Public Use
  Company Number: US-NOVARTISPH-NVSC2021US177573

PATIENT
  Sex: Female

DRUGS (1)
  1. ENTRESTO [Suspect]
     Active Substance: SACUBITRIL\VALSARTAN
     Indication: Product used for unknown indication
     Dosage: 49-51 MG, BID
     Route: 048
     Dates: start: 20200908, end: 20220921

REACTIONS (3)
  - Intracranial aneurysm [Unknown]
  - Blood pressure increased [Unknown]
  - Product dose omission issue [Unknown]
